FAERS Safety Report 13856281 (Version 3)
Quarter: 2020Q2

REPORT INFORMATION
  Report Type: Report from Study
  Country: US (occurrence: US)
  Receive Date: 20170810
  Receipt Date: 20200514
  Transmission Date: 20200713
  Serious: Yes (Death, Hospitalization)
  Sender: FDA-Public Use
  Company Number: US-ACTELION-A-US2017-155358

PATIENT
  Age: 62 Year
  Sex: Female
  Weight: 52.15 kg

DRUGS (27)
  1. PREVACID [Concomitant]
     Active Substance: LANSOPRAZOLE
  2. ONDANSETRON [Concomitant]
     Active Substance: ONDANSETRON
  3. ROPINIROLE. [Concomitant]
     Active Substance: ROPINIROLE
  4. UPTRAVI [Suspect]
     Active Substance: SELEXIPAG
     Dosage: 1200 MCG, UNK
     Route: 048
     Dates: start: 20170526
  5. COUMADIN [Concomitant]
     Active Substance: WARFARIN SODIUM
  6. POTASSIUM CHLORIDE. [Concomitant]
     Active Substance: POTASSIUM CHLORIDE
  7. LASIX [Concomitant]
     Active Substance: FUROSEMIDE
  8. ATORVASTATIN [Concomitant]
     Active Substance: ATORVASTATIN
  9. HYDROXYCHLOROQUINE [Concomitant]
     Active Substance: HYDROXYCHLOROQUINE
  10. ELIQUIS [Concomitant]
     Active Substance: APIXABAN
  11. IMODIUM [Concomitant]
     Active Substance: LOPERAMIDE HYDROCHLORIDE
  12. UPTRAVI [Suspect]
     Active Substance: SELEXIPAG
     Dosage: 200 MCG, UNK
     Route: 048
     Dates: start: 20170526
  13. TYVASO [Suspect]
     Active Substance: TREPROSTINIL
     Indication: PULMONARY HYPERTENSION
     Dosage: 18-72 MCG (3-12 BREATHS), QID
     Route: 055
     Dates: start: 20160325
  14. TYVASO [Suspect]
     Active Substance: TREPROSTINIL
     Dosage: 36 MCG (6 BREATHS), QID
     Route: 055
  15. PHENERGAN [Concomitant]
     Active Substance: PROMETHAZINE HYDROCHLORIDE
  16. ASPIR 81 [Concomitant]
     Active Substance: ASPIRIN
  17. DIGOXIN. [Concomitant]
     Active Substance: DIGOXIN
  18. UPTRAVI [Suspect]
     Active Substance: SELEXIPAG
     Indication: PULMONARY HYPERTENSION
     Dosage: 1600 MCG, BID
     Route: 048
  19. TYVASO [Suspect]
     Active Substance: TREPROSTINIL
     Dosage: 18-54MCG (3-9 BREATHS), QID
     Route: 055
     Dates: start: 20160607
  20. LETAIRIS [Suspect]
     Active Substance: AMBRISENTAN
     Indication: PULMONARY HYPERTENSION
     Dosage: 10 MG, QD
     Route: 048
     Dates: start: 20100816
  21. TRAMADOL. [Concomitant]
     Active Substance: TRAMADOL
  22. CELLCEPT [Concomitant]
     Active Substance: MYCOPHENOLATE MOFETIL\MYCOPHENOLATE MOFETIL HYDROCHLORIDE
  23. VITAMIN B12 [Concomitant]
     Active Substance: CYANOCOBALAMIN
  24. LETAIRIS [Suspect]
     Active Substance: AMBRISENTAN
     Indication: SCLERODERMA
  25. LIDOCAINE. [Concomitant]
     Active Substance: LIDOCAINE
  26. TYVASO [Suspect]
     Active Substance: TREPROSTINIL
     Dosage: 60 MCG, QID
     Route: 055
  27. REVATIO [Concomitant]
     Active Substance: SILDENAFIL CITRATE

REACTIONS (9)
  - Right ventricular enlargement [Unknown]
  - Heart valve incompetence [Unknown]
  - Nausea [Not Recovered/Not Resolved]
  - Headache [Not Recovered/Not Resolved]
  - Weight decreased [Unknown]
  - Vomiting [Recovered/Resolved]
  - Pulmonary hypertension [Fatal]
  - Chest pain [Unknown]
  - Condition aggravated [Unknown]

NARRATIVE: CASE EVENT DATE: 201705
